FAERS Safety Report 9811207 (Version 1)
Quarter: 2014Q1

REPORT INFORMATION
  Report Type: Spontaneous
  Country: US (occurrence: US)
  Receive Date: 20140110
  Receipt Date: 20140110
  Transmission Date: 20141002
  Serious: Yes (Hospitalization)
  Sender: FDA-Public Use
  Company Number: US-SANOFI-AVENTIS-2013SA015905

PATIENT
  Age: 64 Year
  Sex: Male

DRUGS (59)
  1. PLAVIX [Suspect]
     Route: 048
  2. BLINDED THERAPY [Suspect]
     Indication: TYPE 2 DIABETES MELLITUS
     Dates: start: 20111108, end: 20130206
  3. METFORMIN HYDROCHLORIDE [Suspect]
     Indication: TYPE 2 DIABETES MELLITUS
  4. HUMALOG [Suspect]
     Indication: TYPE 2 DIABETES MELLITUS
     Dates: start: 20120107, end: 20120124
  5. HUMALOG [Suspect]
     Indication: TYPE 2 DIABETES MELLITUS
     Dates: start: 20120125, end: 20120510
  6. HUMALOG [Suspect]
     Indication: TYPE 2 DIABETES MELLITUS
     Dates: start: 20120511
  7. LANTUS [Suspect]
     Indication: TYPE 2 DIABETES MELLITUS
     Dates: start: 20120107, end: 20120124
  8. LANTUS [Suspect]
     Indication: TYPE 2 DIABETES MELLITUS
     Dates: start: 20120125, end: 20120510
  9. LANTUS [Suspect]
     Indication: TYPE 2 DIABETES MELLITUS
     Dates: start: 20120511
  10. AMARYL [Concomitant]
     Dates: end: 20111112
  11. AMARYL [Concomitant]
     Dates: start: 20111215, end: 20120125
  12. AMARYL [Concomitant]
     Dates: start: 20111114, end: 20111214
  13. ASPIRIN [Concomitant]
     Dates: start: 20111107
  14. ASPIRIN [Concomitant]
     Dates: start: 20120125
  15. ASPIRIN [Concomitant]
     Dates: start: 20120724
  16. ASPIRIN [Concomitant]
     Dates: start: 20120511
  17. ASPIRIN [Concomitant]
     Dates: start: 20121114
  18. NIACIN [Concomitant]
     Dates: start: 20111107
  19. NIACIN [Concomitant]
     Dates: start: 20120125
  20. NIACIN [Concomitant]
     Dates: start: 20120724
  21. NIACIN [Concomitant]
     Dates: start: 20120511
  22. NIACIN [Concomitant]
     Dates: start: 20120214
  23. PLATELET AGGREGATION INHIBITORS [Concomitant]
     Dates: start: 20111107
  24. PLATELET AGGREGATION INHIBITORS [Concomitant]
     Dates: start: 20120125
  25. PLATELET AGGREGATION INHIBITORS [Concomitant]
     Dates: start: 20120724
  26. PLATELET AGGREGATION INHIBITORS [Concomitant]
     Dates: start: 20120511
  27. PLATELET AGGREGATION INHIBITORS [Concomitant]
     Dates: start: 20121114
  28. PLATELET AGGREGATION INHIBITORS [Concomitant]
     Dates: start: 20130207
  29. BETA BLOCKING AGENTS [Concomitant]
     Dates: start: 20111107
  30. BETA BLOCKING AGENTS [Concomitant]
     Dates: start: 20120125
  31. BETA BLOCKING AGENTS [Concomitant]
     Dates: start: 20120724
  32. BETA BLOCKING AGENTS [Concomitant]
     Dates: start: 20120511
  33. BETA BLOCKING AGENTS [Concomitant]
     Dates: start: 20121114
  34. BETA BLOCKING AGENTS [Concomitant]
     Dates: start: 20130207
  35. HMG COA REDUCTASE INHIBITORS [Concomitant]
     Dates: start: 20111107
  36. HMG COA REDUCTASE INHIBITORS [Concomitant]
     Dates: start: 20120125
  37. HMG COA REDUCTASE INHIBITORS [Concomitant]
     Dates: start: 20120724
  38. HMG COA REDUCTASE INHIBITORS [Concomitant]
     Dates: start: 20120511
  39. HMG COA REDUCTASE INHIBITORS [Concomitant]
     Dates: start: 20121114
  40. HMG COA REDUCTASE INHIBITORS [Concomitant]
     Dates: start: 20130207
  41. ANGIOTENSIN II ANTAGONISTS [Concomitant]
     Dates: start: 20111107
  42. ANGIOTENSIN II ANTAGONISTS [Concomitant]
     Dates: start: 20110125
  43. ANGIOTENSIN II ANTAGONISTS [Concomitant]
     Dates: start: 20120724
  44. ANGIOTENSIN II ANTAGONISTS [Concomitant]
     Dates: start: 20120511
  45. ANGIOTENSIN II ANTAGONISTS [Concomitant]
     Dates: start: 20121114
  46. ANGIOTENSIN II ANTAGONISTS [Concomitant]
     Dates: start: 20130207
  47. ALL OTHER THERAPEUTIC PRODUCTS [Concomitant]
     Dates: start: 20111107
  48. ALL OTHER THERAPEUTIC PRODUCTS [Concomitant]
     Dates: start: 20120125
  49. ALL OTHER THERAPEUTIC PRODUCTS [Concomitant]
     Dates: start: 20121114
  50. DIURETICS [Concomitant]
     Dates: start: 20111107
  51. DIURETICS [Concomitant]
     Dates: start: 20120125
  52. DIURETICS [Concomitant]
     Dates: start: 20120724
  53. DIURETICS [Concomitant]
     Dates: start: 20120511
  54. DIURETICS [Concomitant]
     Dates: start: 20121114
  55. ANTIARRHYTHMICS, CLASS I AND III [Concomitant]
     Dates: start: 20111107
  56. ANTIARRHYTHMICS, CLASS I AND III [Concomitant]
     Dates: start: 20120125
  57. ANTIARRHYTHMICS, CLASS I AND III [Concomitant]
     Dates: start: 20130207
  58. ALL OTHER THERAPEUTIC PRODUCTS [Concomitant]
     Dates: start: 20130207
  59. LASIX [Concomitant]
     Dates: start: 20121228, end: 20121229

REACTIONS (1)
  - Thrombocytopenia [Recovering/Resolving]
